FAERS Safety Report 23644330 (Version 1)
Quarter: 2024Q1

REPORT INFORMATION
  Report Type: Spontaneous
  Country: US (occurrence: US)
  Receive Date: 20240318
  Receipt Date: 20240318
  Transmission Date: 20240410
  Serious: Yes (Other)
  Sender: FDA-Public Use
  Company Number: US-PFIZER INC-PV202400035276

PATIENT
  Age: 61 Year
  Sex: Male

DRUGS (8)
  1. BRENTUXIMAB VEDOTIN [Suspect]
     Active Substance: BRENTUXIMAB VEDOTIN
     Indication: Chronic lymphocytic leukaemia
     Dosage: 6, CYCLIC
  2. BRENTUXIMAB VEDOTIN [Suspect]
     Active Substance: BRENTUXIMAB VEDOTIN
     Indication: Richter^s syndrome
     Dosage: 0.9 MG/KG
  3. DOXORUBICIN HYDROCHLORIDE [Suspect]
     Active Substance: DOXORUBICIN HYDROCHLORIDE
     Indication: Chronic lymphocytic leukaemia
     Dosage: 6, CYCLIC
  4. DOXORUBICIN HYDROCHLORIDE [Suspect]
     Active Substance: DOXORUBICIN HYDROCHLORIDE
     Indication: Richter^s syndrome
  5. DACARBAZINE [Suspect]
     Active Substance: DACARBAZINE
     Indication: Chronic lymphocytic leukaemia
     Dosage: 6, CYCLIC
  6. DACARBAZINE [Suspect]
     Active Substance: DACARBAZINE
     Indication: Richter^s syndrome
  7. VINBLASTINE [Suspect]
     Active Substance: VINBLASTINE
     Indication: Chronic lymphocytic leukaemia
     Dosage: 6, CYCLIC
  8. VINBLASTINE [Suspect]
     Active Substance: VINBLASTINE
     Indication: Richter^s syndrome

REACTIONS (1)
  - Neuropathy peripheral [Unknown]
